FAERS Safety Report 7061507-4 (Version None)
Quarter: 2010Q4

REPORT INFORMATION
  Report Type: 
  Country: None (occurrence: None)
  Receive Date: 20101026
  Receipt Date: 20101019
  Transmission Date: 20110411
  Serious: Yes (Death)
  Sender: FDA-Public Use
  Company Number: FR-PFIZER INC-2010132391

PATIENT
  Age: 30 Year
  Sex: Male
  Weight: 55 kg

DRUGS (4)
  1. SUTENT [Suspect]
     Indication: HEPATIC NEOPLASM MALIGNANT RECURRENT
     Dosage: 50 MG, 1X/DAY
     Route: 048
     Dates: start: 20091125, end: 20100120
  2. SKENAN [Concomitant]
     Dosage: 120 MG/24 H
     Route: 048
     Dates: start: 20100105
  3. MORPHINE [Concomitant]
     Dosage: 40 MG/24 H
     Route: 048
     Dates: start: 20100105
  4. DURAGESIC-100 [Concomitant]
     Dosage: 100 UG/24H
     Route: 062
     Dates: start: 20100120

REACTIONS (1)
  - DEATH [None]
